FAERS Safety Report 8124571-7 (Version None)
Quarter: 2012Q1

REPORT INFORMATION
  Report Type: 
  Country: None (occurrence: None)
  Receive Date: 20120209
  Receipt Date: 20120207
  Transmission Date: 20120608
  Serious: Yes (Other)
  Sender: FDA-Public Use
  Company Number: US-AMGEN-USASP2012007215

PATIENT

DRUGS (6)
  1. CALCIUM [Concomitant]
     Dosage: UNK
  2. VITAMIN D [Concomitant]
     Dosage: UNK
  3. MAGNESIUM [Concomitant]
     Dosage: UNK
  4. ENBREL [Suspect]
     Indication: RHEUMATOID ARTHRITIS
     Dosage: 25 MG, UNK
     Dates: start: 20061201
  5. XANAX [Concomitant]
     Dosage: UNK MG, UNK
  6. LEVOXYL [Concomitant]
     Dosage: UNK MUG, UNK

REACTIONS (1)
  - ATRIAL FIBRILLATION [None]
